FAERS Safety Report 6684945-8 (Version None)
Quarter: 2010Q2

REPORT INFORMATION
  Report Type: 
  Country: None (occurrence: None)
  Receive Date: 20100416
  Receipt Date: 20100414
  Transmission Date: 20101027
  Serious: Yes (Hospitalization)
  Sender: FDA-Public Use
  Company Number: DE-SANOFI-AVENTIS-200813148DE

PATIENT
  Age: 22 Year
  Sex: Female

DRUGS (4)
  1. SODIUM FERRIC GLUCONATE COMPLEX [Suspect]
     Indication: DRUG USE FOR UNKNOWN INDICATION
     Dosage: DOSE AS USED: NOT REPORTED
     Route: 042
     Dates: start: 20081201, end: 20090115
  2. COMBINATIONS OF VITAMINS [Concomitant]
     Indication: DRUG USE FOR UNKNOWN INDICATION
     Dosage: DOSE AS USED: NOT REPORTED
     Route: 041
  3. RINGER-LAKTAT [Concomitant]
     Indication: DRUG USE FOR UNKNOWN INDICATION
     Route: 041
  4. FOLIC ACID [Suspect]
     Indication: DRUG USE FOR UNKNOWN INDICATION
     Route: 065

REACTIONS (2)
  - DRUG EXPOSURE DURING PREGNANCY [None]
  - HYPEREMESIS GRAVIDARUM [None]
